FAERS Safety Report 9812509 (Version 3)
Quarter: 2014Q1

REPORT INFORMATION
  Report Type: Spontaneous
  Country: SA (occurrence: SA)
  Receive Date: 20140113
  Receipt Date: 20140331
  Transmission Date: 20141002
  Serious: Yes (Death, Hospitalization)
  Sender: FDA-Public Use
  Company Number: SA-JNJFOC-20140104750

PATIENT
  Sex: Male
  Weight: 56 kg

DRUGS (5)
  1. ZYTIGA [Suspect]
     Indication: PROSTATE CANCER METASTATIC
     Route: 048
     Dates: start: 20131208, end: 20140104
  2. PREDNISOLONE [Concomitant]
     Indication: PROSTATE CANCER
     Route: 065
     Dates: start: 20131208, end: 20140104
  3. CALCIUM CARBONATE VITAMIN D [Concomitant]
     Indication: PROSTATE CANCER
     Dosage: 600J/200IU/1X2
     Route: 065
     Dates: start: 20131230, end: 20140103
  4. MORPHINE SULFATE [Concomitant]
     Indication: BONE PAIN
     Route: 065
     Dates: start: 20131231, end: 20140103
  5. HALOPERIDOL [Concomitant]
     Indication: AGITATION
     Route: 058
     Dates: start: 20131228, end: 20140104

REACTIONS (1)
  - Disease progression [Fatal]
